FAERS Safety Report 8845594 (Version 1)
Quarter: 2012Q4

REPORT INFORMATION
  Report Type: 
  Country: US (occurrence: US)
  Receive Date: 20121017
  Receipt Date: 20121017
  Transmission Date: 20130627
  Serious: Yes (Other)
  Sender: FDA-Public Use
  Company Number: US-ROCHE-1131400

PATIENT
  Sex: Male

DRUGS (4)
  1. RITUXAN [Suspect]
     Indication: IDIOPATHIC THROMBOCYTOPENIC PURPURA
     Route: 065
  2. RITUXAN [Suspect]
     Indication: HYPERGAMMAGLOBULINAEMIA BENIGN MONOCLONAL
  3. RITUXAN [Suspect]
     Indication: OFF LABEL USE
  4. PREDNISONE [Concomitant]
     Route: 065

REACTIONS (4)
  - Thrombocytopenia [Unknown]
  - Cough [Unknown]
  - Upper respiratory tract infection [Unknown]
  - Dyspnoea [Unknown]
